FAERS Safety Report 6860583-9 (Version None)
Quarter: 2010Q3

REPORT INFORMATION
  Report Type: 
  Country: None (occurrence: None)
  Receive Date: 20100720
  Receipt Date: 20100713
  Transmission Date: 20110219
  Serious: Yes (Other)
  Sender: FDA-Public Use
  Company Number: B0666266A

PATIENT
  Age: 76 Year
  Sex: Female

DRUGS (1)
  1. REQUIP [Suspect]
     Indication: PARKINSON'S DISEASE
     Dosage: 2MG PER DAY
     Route: 065
     Dates: start: 20100601, end: 20100709

REACTIONS (5)
  - AGGRESSION [None]
  - BALANCE DISORDER [None]
  - GAIT DISTURBANCE [None]
  - HALLUCINATION, VISUAL [None]
  - PAIN IN EXTREMITY [None]
